FAERS Safety Report 4908641-X (Version None)
Quarter: 2006Q1

REPORT INFORMATION
  Report Type: 
  Country: None (occurrence: None)
  Receive Date: 20060210
  Receipt Date: 20050926
  Transmission Date: 20060701
  Serious: No
  Sender: FDA-Public Use
  Company Number: US-GLAXOSMITHKLINE-A0575899A

PATIENT
  Sex: Male

DRUGS (10)
  1. PAXIL [Suspect]
     Indication: DEPRESSION
     Route: 048
  2. AMBIEN [Concomitant]
  3. LIPITOR [Concomitant]
  4. SINGULAIR [Concomitant]
  5. UROXATRAL [Concomitant]
  6. ACTOS [Concomitant]
  7. MICARDIS [Concomitant]
  8. SYNTHROID [Concomitant]
  9. DUONEB [Concomitant]
  10. PULMICORT [Concomitant]

REACTIONS (2)
  - AGITATION [None]
  - DRUG INEFFECTIVE [None]
